FAERS Safety Report 16120340 (Version 7)
Quarter: 2022Q4

REPORT INFORMATION
  Report Type: Spontaneous
  Country: CA (occurrence: CA)
  Receive Date: 20190326
  Receipt Date: 20221003
  Transmission Date: 20230113
  Serious: Yes (Other)
  Sender: FDA-Public Use
  Company Number: PHHY2019CA062039

PATIENT
  Age: 60 Year
  Sex: Female

DRUGS (129)
  1. FORADIL [Suspect]
     Active Substance: FORMOTEROL FUMARATE
     Indication: Product used for unknown indication
     Dosage: 2 DF, QD
     Route: 065
  2. FORADIL [Suspect]
     Active Substance: FORMOTEROL FUMARATE
     Dosage: UNK, BID
     Route: 065
  3. ESTRADIOL [Suspect]
     Active Substance: ESTRADIOL
     Indication: Product used for unknown indication
     Dosage: 3 DF, QD
     Route: 065
  4. ESTRADIOL [Suspect]
     Active Substance: ESTRADIOL
     Dosage: 3 DF, QD
     Route: 065
  5. ESTRADIOL [Suspect]
     Active Substance: ESTRADIOL
     Dosage: 3 DF, QD
     Route: 065
  6. ESTRADIOL [Suspect]
     Active Substance: ESTRADIOL
     Dosage: 3 DF, QD
     Route: 065
  7. ESTRADIOL [Suspect]
     Active Substance: ESTRADIOL
     Dosage: 3 DF, QD
     Route: 065
  8. FLUCONAZOLE [Suspect]
     Active Substance: FLUCONAZOLE
     Indication: Product used for unknown indication
     Dosage: 50 MG, CYCLIC
     Route: 065
  9. FLUCONAZOLE [Suspect]
     Active Substance: FLUCONAZOLE
     Dosage: 50 MG
     Route: 065
  10. FLUCONAZOLE [Suspect]
     Active Substance: FLUCONAZOLE
     Dosage: UNK
     Route: 065
  11. FLUCONAZOLE [Suspect]
     Active Substance: FLUCONAZOLE
     Dosage: UNK
     Route: 065
  12. FLUCONAZOLE [Suspect]
     Active Substance: FLUCONAZOLE
     Dosage: UNK
     Route: 065
  13. MONTELUKAST SODIUM [Suspect]
     Active Substance: MONTELUKAST SODIUM
     Indication: Product used for unknown indication
     Dosage: 10 MG, QD
     Route: 065
  14. MONTELUKAST SODIUM [Suspect]
     Active Substance: MONTELUKAST SODIUM
     Dosage: 10 MG, QD
     Route: 065
  15. MONTELUKAST SODIUM [Suspect]
     Active Substance: MONTELUKAST SODIUM
     Dosage: 10 MG, QD
     Route: 065
  16. MONTELUKAST SODIUM [Suspect]
     Active Substance: MONTELUKAST SODIUM
     Dosage: 10 MG, QD
     Route: 065
  17. MONTELUKAST SODIUM [Suspect]
     Active Substance: MONTELUKAST SODIUM
     Dosage: 10 MG, QD
     Route: 065
  18. MONTELUKAST SODIUM [Suspect]
     Active Substance: MONTELUKAST SODIUM
     Dosage: 10 MG, QD
     Route: 065
  19. MONTELUKAST SODIUM [Suspect]
     Active Substance: MONTELUKAST SODIUM
     Dosage: UNK
     Route: 065
  20. FORMOTEROL [Suspect]
     Active Substance: FORMOTEROL
     Indication: Product used for unknown indication
     Dosage: 2 DF, QD
  21. FORMOTEROL [Suspect]
     Active Substance: FORMOTEROL
     Dosage: 1 DOSAGE FORM, BID
  22. FORMOTEROL [Suspect]
     Active Substance: FORMOTEROL
     Dosage: 2 DF, QD
  23. FORMOTEROL [Suspect]
     Active Substance: FORMOTEROL
     Dosage: 2 DF, QD
  24. FORMOTEROL [Suspect]
     Active Substance: FORMOTEROL
     Dosage: 2 DF, QD
  25. FORMOTEROL [Suspect]
     Active Substance: FORMOTEROL
     Dosage: 2 DF, QD
  26. FORMOTEROL [Suspect]
     Active Substance: FORMOTEROL
     Dosage: 2 DF, QD
  27. FORMOTEROL [Suspect]
     Active Substance: FORMOTEROL
     Dosage: 2 DF, QD
  28. FORMOTEROL [Suspect]
     Active Substance: FORMOTEROL
     Dosage: 2 DF, QD
  29. CLARITHROMYCIN [Suspect]
     Active Substance: CLARITHROMYCIN
     Indication: Product used for unknown indication
     Dosage: 2 DF, QD
     Route: 065
  30. ASPIRIN [Suspect]
     Active Substance: ASPIRIN
     Indication: Product used for unknown indication
     Dosage: 10 MG, QD
     Route: 065
  31. ESOMEPRAZOLE MAGNESIUM [Suspect]
     Active Substance: ESOMEPRAZOLE MAGNESIUM
     Indication: Product used for unknown indication
     Dosage: 40 MG, BID
     Route: 065
  32. ESOMEPRAZOLE MAGNESIUM [Suspect]
     Active Substance: ESOMEPRAZOLE MAGNESIUM
     Dosage: 40 MG, BID
     Route: 065
  33. ESOMEPRAZOLE MAGNESIUM [Suspect]
     Active Substance: ESOMEPRAZOLE MAGNESIUM
     Dosage: 40 MG, BID
     Route: 065
  34. ESOMEPRAZOLE MAGNESIUM [Suspect]
     Active Substance: ESOMEPRAZOLE MAGNESIUM
     Dosage: 40 MG, BID
     Route: 065
  35. ESOMEPRAZOLE MAGNESIUM [Suspect]
     Active Substance: ESOMEPRAZOLE MAGNESIUM
     Dosage: 40 MG, BID
     Route: 065
  36. ESOMEPRAZOLE MAGNESIUM [Suspect]
     Active Substance: ESOMEPRAZOLE MAGNESIUM
     Dosage: 40 MG, BID
     Route: 065
  37. COLACE [Suspect]
     Active Substance: DOCUSATE SODIUM
     Indication: Product used for unknown indication
     Dosage: 200 MG, QD
     Route: 065
  38. COLACE [Suspect]
     Active Substance: DOCUSATE SODIUM
     Dosage: 3 DF
     Route: 065
  39. COLACE [Suspect]
     Active Substance: DOCUSATE SODIUM
     Dosage: 200 MG, QD
     Route: 065
  40. COLACE [Suspect]
     Active Substance: DOCUSATE SODIUM
     Dosage: 200 MG, QD
     Route: 065
  41. COLACE [Suspect]
     Active Substance: DOCUSATE SODIUM
     Dosage: 200 MG, QD
     Route: 065
  42. COLACE [Suspect]
     Active Substance: DOCUSATE SODIUM
     Dosage: 200 MG, QD
     Route: 065
  43. ACTONEL [Suspect]
     Active Substance: RISEDRONATE SODIUM
     Indication: Product used for unknown indication
     Dosage: 35 MG, QW
     Route: 065
  44. ACTONEL [Suspect]
     Active Substance: RISEDRONATE SODIUM
     Dosage: 35 MG, QW
     Route: 065
  45. ACTONEL [Suspect]
     Active Substance: RISEDRONATE SODIUM
     Dosage: 35 MG, QW
     Route: 065
  46. ACTONEL [Suspect]
     Active Substance: RISEDRONATE SODIUM
     Dosage: 35 MG, QW
     Route: 065
  47. ACTONEL [Suspect]
     Active Substance: RISEDRONATE SODIUM
     Dosage: 35 MG
     Route: 065
  48. ALBUTEROL SULFATE [Suspect]
     Active Substance: ALBUTEROL SULFATE
     Indication: Product used for unknown indication
     Dosage: UNK, PRN
     Route: 065
  49. ALBUTEROL SULFATE [Suspect]
     Active Substance: ALBUTEROL SULFATE
     Dosage: UNK
     Route: 065
  50. ALBUTEROL SULFATE [Suspect]
     Active Substance: ALBUTEROL SULFATE
     Dosage: UNK
     Route: 065
  51. ALBUTEROL SULFATE [Suspect]
     Active Substance: ALBUTEROL SULFATE
     Dosage: UNK
     Route: 065
  52. POLYMOX [Suspect]
     Active Substance: AMOXICILLIN
     Indication: Product used for unknown indication
     Dosage: 2 DF, QD
     Route: 065
  53. POLYMOX [Suspect]
     Active Substance: AMOXICILLIN
     Dosage: 40 MG
     Route: 065
  54. BREO ELLIPTA [Suspect]
     Active Substance: FLUTICASONE FUROATE\VILANTEROL TRIFENATATE
     Indication: Product used for unknown indication
     Dosage: 1 DF, QD (INHALATION)
  55. BREO ELLIPTA [Suspect]
     Active Substance: FLUTICASONE FUROATE\VILANTEROL TRIFENATATE
     Dosage: 1 DF, QD (INHALATION)
  56. BREO ELLIPTA [Suspect]
     Active Substance: FLUTICASONE FUROATE\VILANTEROL TRIFENATATE
     Dosage: 1 DF, QD (INHALATION)
  57. BREO ELLIPTA [Suspect]
     Active Substance: FLUTICASONE FUROATE\VILANTEROL TRIFENATATE
     Dosage: 1 DF, QD (INHALATION)
  58. BREO ELLIPTA [Suspect]
     Active Substance: FLUTICASONE FUROATE\VILANTEROL TRIFENATATE
     Dosage: 1 DF, QD (INHALATION)
  59. BREO ELLIPTA [Suspect]
     Active Substance: FLUTICASONE FUROATE\VILANTEROL TRIFENATATE
     Dosage: 1 DF, QD (INHALATION)
  60. NYSTATIN [Suspect]
     Active Substance: NYSTATIN
     Indication: Product used for unknown indication
     Dosage: 3 DF, QD
     Route: 048
  61. NYSTATIN [Suspect]
     Active Substance: NYSTATIN
     Dosage: UNK, TID
     Route: 048
  62. NYSTATIN [Suspect]
     Active Substance: NYSTATIN
     Dosage: 3 DF, QD
     Route: 048
  63. NYSTATIN [Suspect]
     Active Substance: NYSTATIN
     Dosage: 3 DF, QD
     Route: 048
  64. NYSTATIN [Suspect]
     Active Substance: NYSTATIN
     Dosage: 3 DF, QD
     Route: 065
  65. NYSTATIN [Suspect]
     Active Substance: NYSTATIN
     Dosage: UNK
     Route: 048
  66. NYSTATIN [Suspect]
     Active Substance: NYSTATIN
     Dosage: UNK
     Route: 048
  67. NYSTATIN [Suspect]
     Active Substance: NYSTATIN
     Dosage: UNK
     Route: 048
  68. NYSTATIN [Suspect]
     Active Substance: NYSTATIN
     Dosage: UNK
     Route: 065
  69. OXYCODONE HYDROCHLORIDE [Suspect]
     Active Substance: OXYCODONE HYDROCHLORIDE
     Indication: Product used for unknown indication
     Dosage: 3 DF, QD
     Route: 065
  70. OXYCODONE HYDROCHLORIDE [Suspect]
     Active Substance: OXYCODONE HYDROCHLORIDE
     Dosage: 15 MG, TID
     Route: 065
  71. OXYCODONE HYDROCHLORIDE [Suspect]
     Active Substance: OXYCODONE HYDROCHLORIDE
     Dosage: 45 MG
     Route: 065
  72. OXYCODONE HYDROCHLORIDE [Suspect]
     Active Substance: OXYCODONE HYDROCHLORIDE
     Dosage: 15 MG, TID
     Route: 065
  73. OXYCODONE HYDROCHLORIDE [Suspect]
     Active Substance: OXYCODONE HYDROCHLORIDE
     Dosage: 15 MG, TID
     Route: 065
  74. OXYCODONE HYDROCHLORIDE [Suspect]
     Active Substance: OXYCODONE HYDROCHLORIDE
     Dosage: 15 MG, TID
     Route: 065
  75. OXYCODONE HYDROCHLORIDE [Suspect]
     Active Substance: OXYCODONE HYDROCHLORIDE
     Dosage: UNK
     Route: 065
  76. OXYCODONE [Suspect]
     Active Substance: OXYCODONE
     Indication: Product used for unknown indication
     Dosage: 3 DF, QD
     Route: 065
  77. OXYCODONE [Suspect]
     Active Substance: OXYCODONE
     Dosage: 15 MG, TID
     Route: 065
  78. OXYCODONE [Suspect]
     Active Substance: OXYCODONE
     Dosage: 3 DF, QD
     Route: 065
  79. OXYCODONE [Suspect]
     Active Substance: OXYCODONE
     Dosage: 3 DF, QD
     Route: 065
  80. OXYCODONE [Suspect]
     Active Substance: OXYCODONE
     Dosage: 15 MG, TID
     Route: 065
  81. OXYCODONE [Suspect]
     Active Substance: OXYCODONE
     Dosage: 15 MG, TID
     Route: 065
  82. OXYCODONE [Suspect]
     Active Substance: OXYCODONE
     Dosage: 15 MG, TID
     Route: 065
  83. PREDNISONE [Suspect]
     Active Substance: PREDNISONE
     Indication: Product used for unknown indication
     Dosage: 15 MG, QD
     Route: 065
  84. PREDNISONE [Suspect]
     Active Substance: PREDNISONE
     Dosage: 15 MG, QD
     Route: 065
  85. PREDNISONE [Suspect]
     Active Substance: PREDNISONE
     Dosage: 15 MG, QD
     Route: 065
  86. PREDNISONE [Suspect]
     Active Substance: PREDNISONE
     Dosage: 15 MG, QD
     Route: 065
  87. PREDNISONE [Suspect]
     Active Substance: PREDNISONE
     Dosage: 15 MG, QD
     Route: 065
  88. PREDNISONE [Suspect]
     Active Substance: PREDNISONE
     Dosage: UNK
     Route: 065
  89. UMECLIDINIUM BROMIDE [Suspect]
     Active Substance: UMECLIDINIUM BROMIDE
     Indication: Product used for unknown indication
     Dosage: 1 MG, QD
  90. UMECLIDINIUM BROMIDE [Suspect]
     Active Substance: UMECLIDINIUM BROMIDE
     Dosage: 1 MG, QD
  91. UMECLIDINIUM BROMIDE [Suspect]
     Active Substance: UMECLIDINIUM BROMIDE
     Dosage: 1 MG, QD
  92. UMECLIDINIUM BROMIDE [Suspect]
     Active Substance: UMECLIDINIUM BROMIDE
     Dosage: 1 DOSAGE FORM, QD
  93. UMECLIDINIUM BROMIDE [Suspect]
     Active Substance: UMECLIDINIUM BROMIDE
     Dosage: 1 DOSAGE FORM, QD
  94. UMECLIDINIUM BROMIDE [Suspect]
     Active Substance: UMECLIDINIUM BROMIDE
     Dosage: 1 DOSAGE FORM, QD
  95. UMECLIDINIUM BROMIDE [Suspect]
     Active Substance: UMECLIDINIUM BROMIDE
     Dosage: 1 DOSAGE FORM, QD
     Route: 065
  96. UMECLIDINIUM BROMIDE [Suspect]
     Active Substance: UMECLIDINIUM BROMIDE
     Dosage: 1 DOSAGE FORM, QD
     Route: 065
  97. VENTOLIN [Suspect]
     Active Substance: ALBUTEROL SULFATE
     Indication: Product used for unknown indication
     Dosage: UNK UNK, PRN (AS REQUIRED)
     Route: 065
  98. VENTOLIN [Suspect]
     Active Substance: ALBUTEROL SULFATE
     Dosage: UNK
     Route: 065
  99. VENTOLIN [Suspect]
     Active Substance: ALBUTEROL SULFATE
     Dosage: UNK
     Route: 065
  100. VENTOLIN [Suspect]
     Active Substance: ALBUTEROL SULFATE
     Dosage: UNK
     Route: 065
  101. VENTOLIN [Suspect]
     Active Substance: ALBUTEROL SULFATE
     Dosage: UNK
     Route: 065
  102. VENTOLIN [Suspect]
     Active Substance: ALBUTEROL SULFATE
     Dosage: UNK
     Route: 065
  103. VENTOLIN [Suspect]
     Active Substance: ALBUTEROL SULFATE
     Dosage: UNK
     Route: 065
  104. FLUTICASONE PROPIONATE [Suspect]
     Active Substance: FLUTICASONE PROPIONATE
     Indication: Product used for unknown indication
     Dosage: 2 DF, QD
  105. FLUTICASONE PROPIONATE [Suspect]
     Active Substance: FLUTICASONE PROPIONATE
     Dosage: UNK, Q2W
     Route: 065
  106. FLUTICASONE PROPIONATE [Suspect]
     Active Substance: FLUTICASONE PROPIONATE
     Dosage: 2 DF, QD
  107. FLUTICASONE PROPIONATE [Suspect]
     Active Substance: FLUTICASONE PROPIONATE
     Dosage: 2 DF, QD
  108. FLUTICASONE PROPIONATE [Suspect]
     Active Substance: FLUTICASONE PROPIONATE
     Dosage: UNK
     Route: 065
  109. FLUTICASONE PROPIONATE [Suspect]
     Active Substance: FLUTICASONE PROPIONATE
     Dosage: UNK
     Route: 065
  110. FLUTICASONE PROPIONATE [Suspect]
     Active Substance: FLUTICASONE PROPIONATE
     Dosage: UNK
     Route: 065
  111. ALBUTEROL [Suspect]
     Active Substance: ALBUTEROL
     Indication: Product used for unknown indication
     Dosage: UNK
     Route: 065
  112. XARELTO [Suspect]
     Active Substance: RIVAROXABAN
     Indication: Product used for unknown indication
     Dosage: 10 MG, QD
     Route: 065
  113. XARELTO [Suspect]
     Active Substance: RIVAROXABAN
     Dosage: 10 MG, QD
     Route: 065
  114. XARELTO [Suspect]
     Active Substance: RIVAROXABAN
     Dosage: 10 MG, QD
     Route: 065
  115. XARELTO [Suspect]
     Active Substance: RIVAROXABAN
     Dosage: UNK
     Route: 065
  116. FORMOTEROL FUMARATE [Suspect]
     Active Substance: FORMOTEROL FUMARATE
     Indication: Product used for unknown indication
     Dosage: 2 DF, QD
     Route: 065
  117. ALBUTEROL SULFATE\IPRATROPIUM BROMIDE [Suspect]
     Active Substance: ALBUTEROL SULFATE\IPRATROPIUM BROMIDE
     Indication: Product used for unknown indication
     Dosage: UNK
     Route: 065
  118. ALBUTEROL SULFATE\IPRATROPIUM BROMIDE [Suspect]
     Active Substance: ALBUTEROL SULFATE\IPRATROPIUM BROMIDE
     Dosage: UNK
     Route: 065
  119. ALBUTEROL SULFATE\IPRATROPIUM BROMIDE [Suspect]
     Active Substance: ALBUTEROL SULFATE\IPRATROPIUM BROMIDE
     Dosage: UNK
     Route: 065
  120. INFLUENZA VIRUS VACCINE [Concomitant]
     Active Substance: INFLUENZA VIRUS VACCINE
     Indication: Prophylaxis
     Dosage: UNK
     Route: 065
  121. METAMUCIL [Concomitant]
     Active Substance: PLANTAGO SEED
     Indication: Product used for unknown indication
     Dosage: UNK
     Route: 065
  122. METAMUCIL [Concomitant]
     Active Substance: PLANTAGO SEED
     Dosage: UNK
     Route: 065
  123. METAMUCIL [Concomitant]
     Active Substance: PLANTAGO SEED
     Dosage: UNK
     Route: 065
  124. METAMUCIL [Concomitant]
     Active Substance: PLANTAGO SEED
     Dosage: UNK
     Route: 065
  125. VITAMINS [Concomitant]
     Active Substance: VITAMINS
     Indication: Product used for unknown indication
     Dosage: UNK
     Route: 065
  126. PNEUMOCOCCAL VACCINE POLYVALENT NOS [Concomitant]
     Active Substance: PNEUMOCOCCAL VACCINE POLYVALENT
     Indication: Product used for unknown indication
     Dosage: UNK
     Route: 065
  127. PULMICORT TURBUHALER [Concomitant]
     Active Substance: BUDESONIDE
     Indication: Seasonal allergy
     Dosage: UNK UNK, BID
     Route: 045
  128. PULMICORT TURBUHALER [Concomitant]
     Active Substance: BUDESONIDE
     Dosage: UNK
     Route: 065
  129. PULMICORT TURBUHALER [Concomitant]
     Active Substance: BUDESONIDE
     Dosage: UNK
     Route: 065

REACTIONS (34)
  - Candida infection [Unknown]
  - Chest discomfort [Unknown]
  - Chronic sinusitis [Unknown]
  - Deep vein thrombosis [Unknown]
  - Diastolic dysfunction [Unknown]
  - Disease recurrence [Unknown]
  - Diverticulum [Unknown]
  - Dyspnoea [Unknown]
  - Dyspnoea exertional [Unknown]
  - Eczema [Unknown]
  - Embolism venous [Unknown]
  - Emphysema [Unknown]
  - Female genital tract fistula [Unknown]
  - Fungal infection [Unknown]
  - Gastrooesophageal reflux disease [Unknown]
  - Hiatus hernia [Unknown]
  - Iron deficiency anaemia [Unknown]
  - Lower respiratory tract infection [Unknown]
  - Nasal polyps [Unknown]
  - Obstructive airways disorder [Unknown]
  - Oedema peripheral [Unknown]
  - Osteoarthritis [Unknown]
  - Osteoporosis [Unknown]
  - Pulmonary embolism [Unknown]
  - Respiratory symptom [Unknown]
  - Sinusitis [Unknown]
  - Sinusitis fungal [Unknown]
  - Sleep apnoea syndrome [Unknown]
  - Sputum increased [Unknown]
  - Tricuspid valve incompetence [Unknown]
  - Weight increased [Unknown]
  - Wheezing [Unknown]
  - Asthma [Unknown]
  - Cough [Unknown]
